FAERS Safety Report 7517414-3 (Version None)
Quarter: 2011Q2

REPORT INFORMATION
  Report Type: 
  Country: None (occurrence: None)
  Receive Date: 20110601
  Receipt Date: 20110519
  Transmission Date: 20111010
  Serious: Yes (Death)
  Sender: FDA-Public Use
  Company Number: US-CELGENEUS-163-21880-11041492

PATIENT
  Sex: Male

DRUGS (13)
  1. REVLIMID [Suspect]
     Dosage: 25 MILLIGRAM
     Route: 048
     Dates: start: 20100601, end: 20110101
  2. DURAGESIC-100 [Concomitant]
     Dosage: 100 MICROGRAM
     Route: 062
  3. CALCIUM CARBONATE [Concomitant]
     Dosage: 500 MILLIGRAM
     Route: 048
  4. HYDROCHLOROTHIAZIDE [Concomitant]
     Indication: BLOOD PRESSURE
     Dosage: 25 MILLIGRAM
     Route: 048
  5. KLOR-CON [Concomitant]
     Dosage: 8 MILLIEQUIVALENTS
     Route: 048
  6. PROTONIX [Concomitant]
     Dosage: 10MG/0.5ML
     Route: 048
  7. BARACLUDE [Concomitant]
     Indication: HEPATITIS B
     Dosage: 1 MILLIGRAM
     Route: 048
  8. VICODIN [Concomitant]
     Dosage: 5-500MG
     Route: 048
  9. REVLIMID [Suspect]
     Dosage: 10 MILLIGRAM
     Route: 048
     Dates: start: 20100114
  10. ATIVAN [Concomitant]
     Indication: ANXIETY
     Dosage: 1 MILLIGRAM
     Route: 048
  11. PRILOSEC [Concomitant]
     Dosage: 40 MILLIGRAM
     Route: 048
  12. DURAGESIC-100 [Concomitant]
     Indication: PAIN
     Dosage: 75 MICROGRAM
     Route: 048
  13. ROXANOL [Concomitant]
     Indication: PAIN
     Route: 065

REACTIONS (2)
  - MULTIPLE MYELOMA [None]
  - LEUKAEMIA PLASMACYTIC [None]
